FAERS Safety Report 5963414-4 (Version None)
Quarter: 2008Q4

REPORT INFORMATION
  Report Type: 
  Country: None (occurrence: None)
  Receive Date: 20081121
  Receipt Date: 20081121
  Transmission Date: 20090506
  Serious: No
  Sender: FDA-Public Use
  Company Number: None

PATIENT
  Age: 54 Year
  Sex: Male
  Weight: 76 kg

DRUGS (11)
  1. BACTRIM DS [Suspect]
     Indication: DIABETIC FOOT
     Dosage: 2 TABS TID
     Dates: start: 20080801, end: 20080805
  2. HEPARIN [Concomitant]
  3. AMLODIPINE [Concomitant]
  4. ASPIRIN [Concomitant]
  5. ATORVASTATIN [Concomitant]
  6. DEPAKOTE [Concomitant]
  7. LASIX [Concomitant]
  8. IBUPROFEN TABLETS [Concomitant]
  9. LANSOPRAZOLE [Concomitant]
  10. NICOTINE [Concomitant]
  11. LISINOPRIL [Concomitant]

REACTIONS (1)
  - BLOOD POTASSIUM INCREASED [None]
